FAERS Safety Report 8777305 (Version 5)
Quarter: 2013Q1

REPORT INFORMATION
  Report Type: Report from Study
  Country: JP (occurrence: JP)
  Receive Date: 20120910
  Receipt Date: 20130225
  Transmission Date: 20140127
  Serious: Yes (Hospitalization, Other)
  Sender: FDA-Public Use
  Company Number: JP-009507513-1209JPN000534

PATIENT
  Age: 70 Year
  Sex: Female
  Weight: 52 kg

DRUGS (14)
  1. PEGINTRON [Suspect]
     Indication: CHRONIC HEPATITIS C
     Dosage: 1.5 MICROGRAM PER KILOGRAM, QW
     Route: 058
     Dates: start: 20120403, end: 20120718
  2. REBETOL [Suspect]
     Indication: CHRONIC HEPATITIS C
     Dosage: 400 MG, QD
     Route: 048
     Dates: start: 20120403, end: 20120430
  3. REBETOL [Suspect]
     Dosage: 200 MG, QD
     Route: 048
     Dates: start: 20120501, end: 20120717
  4. TELAVIC [Suspect]
     Indication: CHRONIC HEPATITIS C
     Dosage: 2250 MG, QD
     Route: 048
     Dates: start: 20120403, end: 20120520
  5. TELAVIC [Suspect]
     Dosage: 1500 MG, QD
     Route: 048
     Dates: start: 20120521, end: 20120626
  6. URSO [Concomitant]
     Indication: CHRONIC HEPATITIS C
     Dosage: 900 MG, QD, POR FORMULATION
     Route: 048
     Dates: end: 20120715
  7. URSO [Concomitant]
     Dosage: 900 MG, QD, POR FORMULATION
     Route: 048
     Dates: start: 20120809
  8. BEZATOL SR [Concomitant]
     Indication: HYPERLIPIDAEMIA
     Dosage: 400 MG, QD, POR FORMULATION
     Route: 048
     Dates: end: 20120715
  9. THYRADIN [Concomitant]
     Indication: HYPOTHYROIDISM
     Dosage: 50 MICROGRAM, QD, POR FORMULATION
     Route: 048
     Dates: end: 20120610
  10. THYRADIN [Concomitant]
     Dosage: 75 MICROGRAM, QD, POR FORMULATION
     Route: 048
     Dates: end: 20120715
  11. THYRADIN [Concomitant]
     Dosage: 100 MICROGRAM, QD, POR FORMULATION
     Route: 048
     Dates: start: 20120719
  12. FLUMETHOLON [Concomitant]
     Indication: UVEITIS
     Dosage: DAILY DOSE UNKNOWN, BID
     Route: 031
  13. HYALEIN [Concomitant]
     Indication: UVEITIS
     Dosage: DAILY DOSE UNKNOWN, QID
     Route: 031
  14. TRAVATANZ [Concomitant]
     Indication: GLAUCOMA
     Dosage: SINGLE DAILY DOSING, QD
     Route: 031

REACTIONS (5)
  - Anaemia [Recovered/Resolved]
  - Decreased appetite [Recovered/Resolved]
  - Ileus [Recovering/Resolving]
  - Pneumonia aspiration [Recovering/Resolving]
  - Pancreatitis acute [Recovering/Resolving]
